FAERS Safety Report 17952762 (Version 1)
Quarter: 2020Q2

REPORT INFORMATION
  Report Type: Spontaneous
  Country: IT (occurrence: IT)
  Receive Date: 20200626
  Receipt Date: 20200626
  Transmission Date: 20200714
  Serious: Yes (Hospitalization)
  Sender: FDA-Public Use
  Company Number: NVSC2020IT174305

PATIENT
  Age: 72 Year
  Sex: Female

DRUGS (7)
  1. DENIBAN [Concomitant]
     Active Substance: AMISULPRIDE
     Indication: PRODUCT USED FOR UNKNOWN INDICATION
     Dosage: UNK
     Route: 065
  2. BROMAZEPAM [Concomitant]
     Active Substance: BROMAZEPAM
     Indication: PRODUCT USED FOR UNKNOWN INDICATION
     Dosage: 2.5 MG
     Route: 065
  3. LANSOX [Concomitant]
     Active Substance: LANSOPRAZOLE
     Indication: PRODUCT USED FOR UNKNOWN INDICATION
     Dosage: UNK
     Route: 065
  4. WELLBUTRIN [Suspect]
     Active Substance: BUPROPION HYDROCHLORIDE
     Indication: DRUG ABUSE
     Dosage: UNK
     Route: 065
     Dates: start: 20191125, end: 20191125
  5. OLANZAPINE. [Suspect]
     Active Substance: OLANZAPINE
     Indication: DRUG ABUSE
     Dosage: UNK
     Route: 065
     Dates: start: 20191125, end: 20191125
  6. ZARELIS [Suspect]
     Active Substance: VENLAFAXINE HYDROCHLORIDE
     Indication: DRUG ABUSE
     Dosage: UNK
     Route: 065
     Dates: start: 20191125, end: 20191125
  7. EDRONAX [Suspect]
     Active Substance: REBOXETINE MESYLATE
     Indication: DRUG ABUSE
     Dosage: UNK
     Route: 065
     Dates: start: 20191125, end: 20191125

REACTIONS (6)
  - Drug abuse [Unknown]
  - Pupillary reflex impaired [Unknown]
  - Pupils unequal [Unknown]
  - Sopor [Unknown]
  - Confusional state [Unknown]
  - Mydriasis [Unknown]

NARRATIVE: CASE EVENT DATE: 20191125
